FAERS Safety Report 9693042 (Version 7)
Quarter: 2014Q1

REPORT INFORMATION
  Report Type: Report from Study
  Country: US (occurrence: US)
  Receive Date: 20131118
  Receipt Date: 20140331
  Transmission Date: 20141002
  Serious: Yes (Disabling, Other)
  Sender: FDA-Public Use
  Company Number: US-SA-2013SA118179

PATIENT
  Age: 58 Year
  Sex: Female

DRUGS (1)
  1. AUBAGIO [Suspect]
     Indication: MULTIPLE SCLEROSIS
     Route: 048
     Dates: start: 20131025

REACTIONS (11)
  - Complex partial seizures [Not Recovered/Not Resolved]
  - Wheelchair user [Unknown]
  - Skin ulcer [Unknown]
  - Blister [Unknown]
  - Eczema [Not Recovered/Not Resolved]
  - Aura [Unknown]
  - Asthenia [Unknown]
  - Asthenia [Unknown]
  - Diplopia [Unknown]
  - Hypersomnia [Unknown]
  - Alopecia [Unknown]
